FAERS Safety Report 17895649 (Version 11)
Quarter: 2021Q1

REPORT INFORMATION
  Report Type: Report from Study
  Country: US (occurrence: US)
  Receive Date: 20200615
  Receipt Date: 20210322
  Transmission Date: 20210419
  Serious: Yes (Hospitalization)
  Sender: FDA-Public Use
  Company Number: NVSC2020US158178

PATIENT
  Age: 45 Year
  Sex: Female
  Weight: 95.24 kg

DRUGS (6)
  1. TREPROSTINIL. [Suspect]
     Active Substance: TREPROSTINIL
     Dosage: 75 (NG/KG/MIN), CONT
     Route: 042
  2. ELIQUIS [Concomitant]
     Active Substance: APIXABAN
     Indication: PULMONARY ARTERIAL HYPERTENSION
     Dosage: UNK
     Route: 065
  3. ADCIRCA [Concomitant]
     Active Substance: TADALAFIL
     Indication: PULMONARY ARTERIAL HYPERTENSION
     Dosage: UNK
     Route: 065
  4. LETAIRIS [Concomitant]
     Active Substance: AMBRISENTAN
     Indication: PULMONARY ARTERIAL HYPERTENSION
     Dosage: UNK
     Route: 065
  5. TREPROSTINIL. [Suspect]
     Active Substance: TREPROSTINIL
     Indication: PULMONARY ARTERIAL HYPERTENSION
     Dosage: 75 (NG/KG/MIN), CONT
     Route: 042
     Dates: start: 20200427
  6. XARELTO [Concomitant]
     Active Substance: RIVAROXABAN
     Indication: PRODUCT USED FOR UNKNOWN INDICATION
     Dosage: UNK
     Route: 065

REACTIONS (10)
  - Swelling [Unknown]
  - Pyrexia [Unknown]
  - Thrombosis [Unknown]
  - Device related infection [Unknown]
  - Discharge [Unknown]
  - Discomfort [Unknown]
  - Chills [Unknown]
  - Vascular device infection [Unknown]
  - Device related infection [Unknown]
  - Erythema [Unknown]

NARRATIVE: CASE EVENT DATE: 20200603
